FAERS Safety Report 10732679 (Version 1)
Quarter: 2015Q1

REPORT INFORMATION
  Report Type: Spontaneous
  Country: US (occurrence: None)
  Receive Date: 20150120
  Receipt Date: 20150120
  Transmission Date: 20150721
  Serious: Yes (Other)
  Sender: FDA-Public Use
  Company Number: 2706208

PATIENT
  Age: 85 Year
  Sex: Male

DRUGS (4)
  1. DIPHENHYDRAMINE [Suspect]
     Active Substance: DIPHENHYDRAMINE
     Indication: VENTRICULAR TACHYCARDIA
  2. PROPOFOL. [Suspect]
     Active Substance: PROPOFOL
     Indication: VENTRICULAR TACHYCARDIA
  3. REMIFENTANIL [Suspect]
     Active Substance: REMIFENTANIL
     Indication: VENTRICULAR TACHYCARDIA
  4. OXYGEN. [Suspect]
     Active Substance: OXYGEN
     Indication: HYPERBARIC OXYGEN THERAPY
     Dosage: 2 L/MIN

REACTIONS (2)
  - Apnoea [None]
  - Condition aggravated [None]
